FAERS Safety Report 5503746-7 (Version None)
Quarter: 2007Q4

REPORT INFORMATION
  Report Type: 
  Country: None (occurrence: None)
  Receive Date: 20071029
  Receipt Date: 20071029
  Transmission Date: 20080405
  Serious: No
  Sender: FDA-Public Use
  Company Number: None

PATIENT
  Age: 62 Year
  Sex: Female
  Weight: 124 kg

DRUGS (2)
  1. DAPTOMYCIN [Suspect]
     Indication: BACTERAEMIA
     Dosage: 800 MG IV EVERY 48 HOURS
     Route: 042
     Dates: start: 20071002
  2. DAPTOMYCIN [Suspect]
     Indication: BACTERAEMIA
     Dosage: 800 MG IV EVERY 48 HOURS
     Route: 042
     Dates: start: 20071008

REACTIONS (1)
  - BLOOD CREATINE PHOSPHOKINASE INCREASED [None]
